FAERS Safety Report 9962108 (Version 1)
Quarter: 2014Q1

REPORT INFORMATION
  Report Type: Spontaneous
  Country: US (occurrence: None)
  Receive Date: 20140304
  Receipt Date: 20140304
  Transmission Date: 20141002
  Serious: Yes (Hospitalization)
  Sender: FDA-Public Use
  Company Number: None

PATIENT
  Age: 74 Year
  Sex: Male
  Weight: 84 kg

DRUGS (1)
  1. CYTARABINE [Suspect]
     Dates: end: 20140208

REACTIONS (1)
  - Febrile neutropenia [None]
